FAERS Safety Report 5719868-1 (Version None)
Quarter: 2008Q2

REPORT INFORMATION
  Report Type: 
  Country: None (occurrence: None)
  Receive Date: 20080428
  Receipt Date: 20080415
  Transmission Date: 20081010
  Serious: Yes (Hospitalization, Other)
  Sender: FDA-Public Use
  Company Number: US-MERCK-0711USA01867

PATIENT
  Age: 61 Year
  Sex: Male
  Weight: 63 kg

DRUGS (7)
  1. FOSAMAX [Suspect]
     Indication: OSTEOPOROSIS
     Route: 048
     Dates: start: 19980301, end: 20010201
  2. FOSAMAX [Suspect]
     Route: 048
     Dates: start: 20010201, end: 20050601
  3. FOSAMAX [Suspect]
     Indication: OSTEOPENIA
     Route: 048
     Dates: start: 19980301, end: 20010201
  4. FOSAMAX [Suspect]
     Route: 048
     Dates: start: 20010201, end: 20050601
  5. PREDNISONE [Concomitant]
     Indication: RHEUMATOID ARTHRITIS
     Route: 065
  6. ARAVA [Concomitant]
     Indication: RHEUMATOID ARTHRITIS
     Route: 065
  7. FOSAMAX PLUS D [Suspect]
     Indication: OSTEOPOROSIS
     Route: 048
     Dates: start: 20050601, end: 20050101

REACTIONS (20)
  - ABSCESS JAW [None]
  - ACUTE SINUSITIS [None]
  - ASTHMA [None]
  - BACTERAEMIA [None]
  - CHRONIC OBSTRUCTIVE PULMONARY DISEASE [None]
  - COMMINUTED FRACTURE [None]
  - CONTUSION [None]
  - DERMAL CYST [None]
  - DIABETES MELLITUS [None]
  - FISTULA [None]
  - GINGIVAL ABSCESS [None]
  - INGUINAL HERNIA [None]
  - LEG AMPUTATION [None]
  - OEDEMA [None]
  - OSTEOMYELITIS [None]
  - OSTEONECROSIS [None]
  - PERICARDIAL EFFUSION [None]
  - RESPIRATORY DISTRESS [None]
  - SKELETAL INJURY [None]
  - SPINAL OSTEOARTHRITIS [None]
